FAERS Safety Report 5883006-5 (Version None)
Quarter: 2008Q3

REPORT INFORMATION
  Report Type: 
  Country: None (occurrence: None)
  Receive Date: 20080913
  Receipt Date: 20080826
  Transmission Date: 20090109
  Serious: No
  Sender: FDA-Public Use
  Company Number: US-ABBOTT-08P-163-0472663-00

PATIENT
  Sex: Female
  Weight: 93.07 kg

DRUGS (2)
  1. HUMIRA [Suspect]
     Indication: RHEUMATOID ARTHRITIS
     Route: 058
     Dates: start: 20050101
  2. METHOTREXATE [Concomitant]
     Indication: RHEUMATOID ARTHRITIS
     Dosage: 3 TABLETS EVERY WEEK
     Route: 048
     Dates: start: 20010101

REACTIONS (5)
  - HOT FLUSH [None]
  - HYPERHIDROSIS [None]
  - SALIVARY DUCT OBSTRUCTION [None]
  - SIALOADENITIS [None]
  - SINUSITIS [None]
